FAERS Safety Report 5020871-8 (Version None)
Quarter: 2006Q2

REPORT INFORMATION
  Report Type: 
  Country: None (occurrence: None)
  Receive Date: 20060414
  Receipt Date: 20051027
  Transmission Date: 20061013
  Serious: Yes (Other)
  Sender: FDA-Public Use
  Company Number: US-JNJFOC-20051100057

PATIENT
  Age: 34 Year
  Sex: Female
  Weight: 54.4316 kg

DRUGS (2)
  1. ULTRAM [Suspect]
     Indication: MIGRAINE
     Dosage: 50 MG, ORAL
     Route: 048
     Dates: end: 20050801
  2. ULTRAM [Suspect]
     Indication: TEMPOROMANDIBULAR JOINT SYNDROME
     Dosage: 50 MG, ORAL
     Route: 048
     Dates: end: 20050801

REACTIONS (3)
  - DRUG ABUSER [None]
  - DRUG DEPENDENCE [None]
  - GRAND MAL CONVULSION [None]
